FAERS Safety Report 10946275 (Version 2)
Quarter: 2015Q2

REPORT INFORMATION
  Report Type: Spontaneous
  Country: US (occurrence: US)
  Receive Date: 20150323
  Receipt Date: 20150605
  Transmission Date: 20150821
  Serious: Yes (Other)
  Sender: FDA-Public Use
  Company Number: US-GLAXOSMITHKLINE-US2015033771

PATIENT
  Sex: Male

DRUGS (8)
  1. TAMSULOSIN [Concomitant]
     Active Substance: TAMSULOSIN
  2. WARFARIN [Concomitant]
     Active Substance: WARFARIN
  3. PROMACTA [Suspect]
     Active Substance: ELTROMBOPAG OLAMINE
  4. PROMACTA [Suspect]
     Active Substance: ELTROMBOPAG OLAMINE
     Indication: IMMUNE THROMBOCYTOPENIC PURPURA
     Dosage: 25 MG, QD
     Route: 048
     Dates: start: 201307
  5. LYRICA [Concomitant]
     Active Substance: PREGABALIN
  6. NEXIUM [Concomitant]
     Active Substance: ESOMEPRAZOLE MAGNESIUM
  7. FUROSEMIDE. [Concomitant]
     Active Substance: FUROSEMIDE
  8. POTASSIUM [Concomitant]
     Active Substance: POTASSIUM

REACTIONS (6)
  - Psoriatic arthropathy [Not Recovered/Not Resolved]
  - Weight decreased [Unknown]
  - Peripheral swelling [Not Recovered/Not Resolved]
  - Therapeutic response unexpected [Unknown]
  - Arthralgia [Not Recovered/Not Resolved]
  - Medical diet [Unknown]

NARRATIVE: CASE EVENT DATE: 2015
